FAERS Safety Report 7319007-X (Version None)
Quarter: 2011Q1

REPORT INFORMATION
  Report Type: 
  Country: None (occurrence: None)
  Receive Date: 20110228
  Receipt Date: 20110216
  Transmission Date: 20110831
  Serious: No
  Sender: FDA-Public Use
  Company Number: US-JNJFOC-20110206168

PATIENT
  Sex: Male

DRUGS (1)
  1. DURAGESIC-50 [Suspect]
     Indication: BACK DISORDER
     Route: 062

REACTIONS (2)
  - DRUG DOSE OMISSION [None]
  - DERMATITIS [None]
